FAERS Safety Report 9655506 (Version 2)
Quarter: 2013Q4

REPORT INFORMATION
  Report Type: Report from Study
  Country: AU (occurrence: AU)
  Receive Date: 20131029
  Receipt Date: 20131029
  Transmission Date: 20140711
  Serious: Yes (Other)
  Sender: FDA-Public Use
  Company Number: PHHY2012AU001581

PATIENT
  Sex: Female

DRUGS (7)
  1. FEMARA [Suspect]
     Indication: BREAST CANCER
     Route: 048
  2. ACLASTA [Suspect]
     Indication: OSTEOPOROSIS
  3. SINEMET [Concomitant]
  4. CALCIUM [Concomitant]
  5. MULTIVITAMINS [Concomitant]
  6. RESTAVIT [Concomitant]
  7. CHEMOTHERAPEUTICS [Concomitant]

REACTIONS (7)
  - Osteoporosis [Unknown]
  - Blister [Not Recovered/Not Resolved]
  - Drug hypersensitivity [Unknown]
  - Hot flush [Unknown]
  - Arthralgia [Unknown]
  - Lichen planus [Unknown]
  - Asthma [Unknown]
